FAERS Safety Report 5975088-7 (Version None)
Quarter: 2008Q4

REPORT INFORMATION
  Report Type: 
  Country: None (occurrence: None)
  Receive Date: 20081128
  Receipt Date: 20081117
  Transmission Date: 20090506
  Serious: Yes (Other)
  Sender: FDA-Public Use
  Company Number: 20586

PATIENT
  Age: 13 Year
  Sex: Male

DRUGS (9)
  1. CYTARABINE [Suspect]
     Indication: ACUTE LYMPHOCYTIC LEUKAEMIA
  2. CYTARABINE [Suspect]
     Indication: NEOPLASM RECURRENCE
  3. METHOTREXATE [Suspect]
     Indication: ACUTE LYMPHOCYTIC LEUKAEMIA
  4. METHOTREXATE [Suspect]
     Indication: NEOPLASM RECURRENCE
  5. VINCRISTINE [Suspect]
     Indication: ACUTE LYMPHOCYTIC LEUKAEMIA
  6. VINCRISTINE [Suspect]
     Indication: NEOPLASM RECURRENCE
  7. ETOPOSIDE [Suspect]
     Indication: ACUTE LYMPHOCYTIC LEUKAEMIA
  8. ETOPOSIDE [Suspect]
     Indication: NEOPLASM RECURRENCE
  9. DEXAMETHASONE [Concomitant]

REACTIONS (11)
  - ANTI-GAD ANTIBODY POSITIVE [None]
  - AXONAL NEUROPATHY [None]
  - CSF MYELIN BASIC PROTEIN INCREASED [None]
  - DRUG TOXICITY [None]
  - ENCEPHALOPATHY [None]
  - IMMUNE SYSTEM DISORDER [None]
  - LOSS OF PROPRIOCEPTION [None]
  - MUSCULOSKELETAL DISORDER [None]
  - MYELOPATHY [None]
  - SENSORY LOSS [None]
  - SPINAL CORD DISORDER [None]
